FAERS Safety Report 6118744-2 (Version None)
Quarter: 2009Q1

REPORT INFORMATION
  Report Type: 
  Country: None (occurrence: None)
  Receive Date: 20090314
  Receipt Date: 20090227
  Transmission Date: 20090719
  Serious: No
  Sender: FDA-Public Use
  Company Number: US-ABBOTT-09P-163-0559650-00

PATIENT
  Sex: Male

DRUGS (1)
  1. HUMIRA [Suspect]
     Indication: RHEUMATOID ARTHRITIS
     Dates: start: 20090123, end: 20090220

REACTIONS (5)
  - BRONCHITIS [None]
  - MALAISE [None]
  - PNEUMONIA [None]
  - RESPIRATORY TRACT CONGESTION [None]
  - RHINORRHOEA [None]
